FAERS Safety Report 22383153 (Version 1)
Quarter: 2023Q2

REPORT INFORMATION
  Report Type: Report from Study
  Country: US (occurrence: US)
  Receive Date: 20230530
  Receipt Date: 20230530
  Transmission Date: 20230721
  Serious: No
  Sender: FDA-Public Use
  Company Number: US-002147023-NVSC2023US122489

PATIENT
  Sex: Female

DRUGS (1)
  1. METHOTREXATE [Suspect]
     Active Substance: METHOTREXATE
     Indication: Psoriasis
     Dosage: UNK (ABOUT 9 MONTHS)
     Route: 065
     Dates: start: 2022, end: 202304

REACTIONS (2)
  - Renal disorder [Not Recovered/Not Resolved]
  - Psoriasis [Not Recovered/Not Resolved]
